FAERS Safety Report 8612541-1 (Version None)
Quarter: 2012Q3

REPORT INFORMATION
  Report Type: 
  Country: None (occurrence: None)
  Receive Date: 20120822
  Receipt Date: 20111118
  Transmission Date: 20120928
  Serious: No
  Sender: FDA-Public Use
  Company Number: US-ASTRAZENECA-2011SE60203

PATIENT
  Age: 24580 Day
  Sex: Female
  Weight: 72.6 kg

DRUGS (2)
  1. SYMBICORT [Suspect]
     Indication: ASTHMA
     Dosage: 160/4.5 MCG, 2 PUFFS,TWICE DAILY
     Route: 055
  2. ALBUTEROL [Concomitant]

REACTIONS (3)
  - INTENTIONAL DRUG MISUSE [None]
  - DYSPHONIA [None]
  - INCORRECT DOSE ADMINISTERED BY DEVICE [None]
